FAERS Safety Report 16123818 (Version 3)
Quarter: 2019Q2

REPORT INFORMATION
  Report Type: Spontaneous
  Country: US (occurrence: US)
  Receive Date: 20190327
  Receipt Date: 20190514
  Transmission Date: 20190711
  Serious: No
  Sender: FDA-Public Use
  Company Number: US-BAYER-2019-059298

PATIENT
  Age: 24 Year
  Sex: Female
  Weight: 53.06 kg

DRUGS (2)
  1. KYLEENA [Suspect]
     Active Substance: LEVONORGESTREL
     Indication: CONTRACEPTION
     Dosage: 17.5 MCG/24HR, CONT
     Route: 015
     Dates: start: 20190225, end: 20190329
  2. KYLEENA [Suspect]
     Active Substance: LEVONORGESTREL
     Indication: CONTRACEPTION
     Dosage: 17.5 MCG/24HR, CONT
     Route: 015
     Dates: start: 20190329

REACTIONS (3)
  - Device expulsion [Recovered/Resolved]
  - Urine abnormality [None]
  - Vaginal haemorrhage [None]

NARRATIVE: CASE EVENT DATE: 20190225
